FAERS Safety Report 6716978-7 (Version None)
Quarter: 2010Q2

REPORT INFORMATION
  Report Type: 
  Country: None (occurrence: None)
  Receive Date: 20100505
  Receipt Date: 20100427
  Transmission Date: 20101027
  Serious: Yes (Other)
  Sender: FDA-Public Use
  Company Number: 1000013432

PATIENT
  Age: 88 Year
  Sex: Female

DRUGS (7)
  1. ARMOUR TYROID          (THYROID) (60MILLIGRAM, TABLETS) [Suspect]
     Indication: HYPOTHYROIDISM
     Dosage: (120 MG, 1 IN 1D) ORAL120
     Route: 048
     Dates: start: 19700101, end: 20091201
  2. MICARDIS [Concomitant]
  3. LANOXIN [Concomitant]
  4. LIBRIUM [Concomitant]
  5. TRUSOPT [Concomitant]
  6. XALATAN [Concomitant]
  7. MULTI-VITAMINS [Concomitant]

REACTIONS (7)
  - ALOPECIA [None]
  - DRY SKIN [None]
  - EPISTAXIS [None]
  - FATIGUE [None]
  - GASTRIC HAEMORRHAGE [None]
  - ONYCHOCLASIS [None]
  - PRODUCT FORMULATION ISSUE [None]
